FAERS Safety Report 5670478-4 (Version None)
Quarter: 2008Q1

REPORT INFORMATION
  Report Type: 
  Country: None (occurrence: None)
  Receive Date: 20080318
  Receipt Date: 20080306
  Transmission Date: 20080703
  Serious: Yes (Hospitalization)
  Sender: FDA-Public Use
  Company Number: JP-WYE-H02987808

PATIENT
  Age: 46 Year
  Sex: Female

DRUGS (1)
  1. PREMARIN [Suspect]
     Indication: AMENORRHOEA
     Dosage: UNKNOWN
     Route: 048
     Dates: start: 20050914

REACTIONS (1)
  - MENINGIOMA [None]
